FAERS Safety Report 5524755-8 (Version None)
Quarter: 2007Q4

REPORT INFORMATION
  Report Type: 
  Country: None (occurrence: None)
  Receive Date: 20071123
  Receipt Date: 20071120
  Transmission Date: 20080405
  Serious: Yes (Life-Threatening, Other)
  Sender: FDA-Public Use
  Company Number: PHEH2007US13319

PATIENT
  Sex: Female

DRUGS (5)
  1. ENABLEX [Suspect]
     Indication: URGE INCONTINENCE
     Dosage: 15 MG, QD
     Route: 048
     Dates: start: 20070905
  2. SYNTHROID [Concomitant]
  3. CYMBALTA [Concomitant]
  4. ALPRAZOLAM [Concomitant]
  5. ACETYLSALICYLATE [Concomitant]

REACTIONS (15)
  - ABDOMINAL PAIN UPPER [None]
  - ACTIVITIES OF DAILY LIVING IMPAIRED [None]
  - ASTHENIA [None]
  - BACK PAIN [None]
  - CONDITION AGGRAVATED [None]
  - CONSTIPATION [None]
  - DIZZINESS [None]
  - FALL [None]
  - FEELING ABNORMAL [None]
  - MICTURITION URGENCY [None]
  - NAUSEA [None]
  - THERAPEUTIC AGENT TOXICITY [None]
  - VISION BLURRED [None]
  - WEIGHT DECREASED [None]
  - WRIST FRACTURE [None]
